FAERS Safety Report 7688850-X (Version None)
Quarter: 2011Q3

REPORT INFORMATION
  Report Type: 
  Country: None (occurrence: None)
  Receive Date: 20110817
  Receipt Date: 20110809
  Transmission Date: 20111222
  Serious: Yes (Hospitalization)
  Sender: FDA-Public Use
  Company Number: PHHY2011TR72125

PATIENT
  Age: 4 Hour
  Sex: Male
  Weight: 3.7 kg

DRUGS (1)
  1. METHERGINE [Suspect]
     Dosage: 0.2 MG, UNK
     Route: 030

REACTIONS (11)
  - OLIGURIA [None]
  - HYPOTENSION [None]
  - TONIC CONVULSION [None]
  - SEPSIS [None]
  - APNOEA [None]
  - APPETITE DISORDER [None]
  - HYPOXIA [None]
  - WRONG DRUG ADMINISTERED [None]
  - CYANOSIS [None]
  - PERIPHERAL VASCULAR DISORDER [None]
  - RENAL IMPAIRMENT [None]
